FAERS Safety Report 9232513 (Version 1)
Quarter: 2013Q2

REPORT INFORMATION
  Report Type: Spontaneous
  Country: US (occurrence: US)
  Receive Date: 20130416
  Receipt Date: 20130416
  Transmission Date: 20140414
  Serious: No
  Sender: FDA-Public Use
  Company Number: US-BIOGENIDEC-2013BI032921

PATIENT
  Age: 49 Year
  Sex: Female

DRUGS (1)
  1. TYSABRI [Suspect]
     Indication: MULTIPLE SCLEROSIS
     Route: 042
     Dates: start: 20120904

REACTIONS (10)
  - Computerised tomogram abnormal [Recovered/Resolved]
  - Muscular weakness [Unknown]
  - Hypoaesthesia [Unknown]
  - Coordination abnormal [Recovered/Resolved]
  - Gait disturbance [Unknown]
  - Back injury [Unknown]
  - Back pain [Unknown]
  - Vein disorder [Not Recovered/Not Resolved]
  - Poor venous access [Recovered/Resolved]
  - Tremor [Unknown]
